FAERS Safety Report 4741382-0 (Version None)
Quarter: 2005Q3

REPORT INFORMATION
  Report Type: 
  Country: None (occurrence: None)
  Receive Date: 20050803
  Receipt Date: 20040706
  Transmission Date: 20060218
  Serious: Yes (Other)
  Sender: FDA-Public Use
  Company Number: 2004-07-0331

PATIENT
  Age: 78 Year
  Sex: Female
  Weight: 62.1428 kg

DRUGS (6)
  1. INTRON A [Suspect]
     Indication: MALIGNANT MELANOMA
     Dosage: SEE IMAGE
     Dates: start: 20040628, end: 20040706
  2. INTRON A [Suspect]
     Indication: MALIGNANT MELANOMA
     Dosage: SEE IMAGE
     Dates: start: 20040628
  3. SYNTHROID [Concomitant]
  4. ZOCOR [Concomitant]
  5. VASOTEC RPD [Concomitant]
  6. OCUVITE [Concomitant]

REACTIONS (4)
  - DIARRHOEA [None]
  - DIZZINESS [None]
  - DYSARTHRIA [None]
  - SYNCOPE VASOVAGAL [None]
